FAERS Safety Report 25535734 (Version 1)
Quarter: 2025Q3

REPORT INFORMATION
  Report Type: Spontaneous
  Country: CN (occurrence: CN)
  Receive Date: 20250709
  Receipt Date: 20250709
  Transmission Date: 20251020
  Serious: Yes (Hospitalization)
  Sender: MYLAN
  Company Number: CN-MYLANLABS-2025M1056618

PATIENT
  Age: 60 Year
  Sex: Female
  Weight: 60 kg

DRUGS (4)
  1. CELEBREX [Suspect]
     Active Substance: CELECOXIB
     Indication: Analgesic therapy
     Dosage: 0.2 GRAM, BID
     Dates: start: 20250622, end: 20250623
  2. CELEBREX [Suspect]
     Active Substance: CELECOXIB
     Dosage: 0.2 GRAM, BID
     Route: 048
     Dates: start: 20250622, end: 20250623
  3. CELEBREX [Suspect]
     Active Substance: CELECOXIB
     Dosage: 0.2 GRAM, BID
     Route: 048
     Dates: start: 20250622, end: 20250623
  4. CELEBREX [Suspect]
     Active Substance: CELECOXIB
     Dosage: 0.2 GRAM, BID
     Dates: start: 20250622, end: 20250623

REACTIONS (2)
  - Pyrexia [Recovered/Resolved]
  - Dermatitis allergic [Recovered/Resolved]

NARRATIVE: CASE EVENT DATE: 20250623
